FAERS Safety Report 4845449-8 (Version None)
Quarter: 2005Q4

REPORT INFORMATION
  Report Type: 
  Country: None (occurrence: None)
  Receive Date: 20051129
  Receipt Date: 20051117
  Transmission Date: 20060501
  Serious: Yes (Hospitalization)
  Sender: FDA-Public Use
  Company Number: 2005-134757-NL

PATIENT
  Age: 13 Year
  Sex: Male

DRUGS (9)
  1. VECURONIUM BROMIDE [Suspect]
     Indication: GENERAL ANAESTHESIA
     Dosage: 5 MG ONCE INTRAVENOUS (NOS)
     Route: 042
     Dates: start: 20051031, end: 20051031
  2. ISOFLURANE [Suspect]
     Indication: GENERAL ANAESTHESIA
     Dosage: RESPIRATORY (INHALATION)
     Route: 055
     Dates: start: 20051031, end: 20051031
  3. PROPOFOL [Suspect]
     Indication: GENERAL ANAESTHESIA
     Dosage: INTRAVENOUS (NOS)
     Route: 042
     Dates: start: 20051031, end: 20051031
  4. DICLOFENAC POTASSIUM [Suspect]
     Indication: PROCEDURAL PAIN
     Dosage: 500 MG PRN
     Dates: start: 20051031, end: 20051101
  5. CEFAZOLIN SODIUM [Suspect]
     Indication: POSTOPERATIVE INFECTION
     Dosage: 2 G INTRAVENOUS (NOS)
     Route: 042
     Dates: start: 20051031, end: 20051101
  6. CETIRIZINE HYDROCHLORIDE [Suspect]
     Indication: RHINITIS ALLERGIC
     Dosage: 10 MG/90 MG ORAL
     Route: 048
     Dates: end: 20051031
  7. CETIRIZINE HYDROCHLORIDE [Suspect]
     Indication: RHINITIS ALLERGIC
     Dosage: 10 MG/90 MG ORAL
     Route: 048
     Dates: start: 20051031, end: 20051101
  8. LOXOPROFEN SODIUM [Suspect]
     Indication: PROCEDURAL PAIN
     Dosage: 540 MG ORAL
     Route: 048
     Dates: start: 20041101, end: 20051102
  9. PENTAZOCINE LACTATE [Concomitant]

REACTIONS (5)
  - ALANINE AMINOTRANSFERASE INCREASED [None]
  - ASPARTATE AMINOTRANSFERASE INCREASED [None]
  - BLOOD CREATINE PHOSPHOKINASE INCREASED [None]
  - BLOOD LACTATE DEHYDROGENASE INCREASED [None]
  - MALAISE [None]
